FAERS Safety Report 11665420 (Version 2)
Quarter: 2016Q3

REPORT INFORMATION
  Report Type: Report from Study
  Country: JP (occurrence: JP)
  Receive Date: 20151027
  Receipt Date: 20160930
  Transmission Date: 20161109
  Serious: Yes (Hospitalization)
  Sender: FDA-Public Use
  Company Number: JP-AMGEN-JPNCT2015112771

PATIENT
  Age: 87 Year
  Sex: Male
  Weight: 59 kg

DRUGS (16)
  1. LYRICA [Suspect]
     Active Substance: PREGABALIN
     Indication: LUMBAR SPINAL STENOSIS
  2. LASIX [Suspect]
     Active Substance: FUROSEMIDE
     Indication: OEDEMA DUE TO RENAL DISEASE
     Dosage: 10 MG, QD
     Route: 048
     Dates: start: 20150826
  3. FLIVAS [Suspect]
     Active Substance: NAFTOPIDIL
     Indication: BENIGN PROSTATIC HYPERPLASIA
     Dosage: 50 MG, QD
     Route: 048
     Dates: start: 20130508
  4. CELECOX [Suspect]
     Active Substance: CELECOXIB
     Indication: PAIN
     Dosage: 100 MG, BID
     Route: 048
     Dates: start: 20150615
  5. DARBEPOETIN ALFA [Suspect]
     Active Substance: DARBEPOETIN ALFA
     Dosage: 120 MUG, Q4WK
     Route: 065
     Dates: start: 20150924
  6. MICARDIS [Suspect]
     Active Substance: TELMISARTAN
     Indication: HYPERTENSION
     Dosage: 40 MG, QD
     Route: 048
     Dates: start: 20100414
  7. OPALMON [Suspect]
     Active Substance: LIMAPROST
     Indication: LUMBAR SPINAL STENOSIS
     Dosage: 5 MUG, TID
     Route: 048
     Dates: start: 20140702
  8. FLIVAS [Suspect]
     Active Substance: NAFTOPIDIL
     Indication: NEUROGENIC BLADDER
     Dosage: 25 MG, QD
     Route: 048
     Dates: start: 20130313
  9. METHYCOBAL [Suspect]
     Active Substance: METHYLCOBALAMIN
     Indication: NEUROPATHY PERIPHERAL
     Dosage: 500 MUG, TID
     Route: 048
     Dates: start: 20140702
  10. LYRICA [Suspect]
     Active Substance: PREGABALIN
     Indication: NEUROPATHY PERIPHERAL
     Dosage: 100 MG, QD
     Route: 048
     Dates: start: 20131204
  11. ZYLORIC [Suspect]
     Active Substance: ALLOPURINOL
     Indication: CHRONIC KIDNEY DISEASE
     Dosage: 100 MG, BID
     Route: 048
     Dates: start: 20151118
  12. ALFAROL [Suspect]
     Active Substance: ALFACALCIDOL
     Indication: HYPERPARATHYROIDISM SECONDARY
     Dosage: 0.25 MUG, QD
     Route: 048
     Dates: start: 20140702
  13. DARBEPOETIN ALFA [Suspect]
     Active Substance: DARBEPOETIN ALFA
     Dosage: 90 MUG, UNK
     Route: 065
     Dates: start: 20150826
  14. DARBEPOETIN ALFA [Suspect]
     Active Substance: DARBEPOETIN ALFA
     Dosage: 180 MUG, Q4WK
     Route: 065
     Dates: start: 20150924
  15. CELECOX [Suspect]
     Active Substance: CELECOXIB
     Dosage: 100 MG, BID
     Route: 048
     Dates: start: 20130702
  16. DARBEPOETIN ALFA [Suspect]
     Active Substance: DARBEPOETIN ALFA
     Indication: CHRONIC KIDNEY DISEASE
     Dosage: 60 MUG, UNK
     Route: 065
     Dates: start: 20150729

REACTIONS (3)
  - Pneumonia [Not Recovered/Not Resolved]
  - Dehydration [Not Recovered/Not Resolved]
  - Disuse syndrome [Not Recovered/Not Resolved]

NARRATIVE: CASE EVENT DATE: 20150924
